FAERS Safety Report 14762266 (Version 1)
Quarter: 2018Q2

REPORT INFORMATION
  Report Type: Spontaneous
  Country: US (occurrence: US)
  Receive Date: 20180416
  Receipt Date: 20180416
  Transmission Date: 20180711
  Serious: No
  Sender: FDA-Public Use
  Company Number: US-BION-006837

PATIENT
  Age: 74 Year
  Sex: Male

DRUGS (11)
  1. CARDIZEM [Concomitant]
     Active Substance: DILTIAZEM HYDROCHLORIDE
  2. BACTRIM [Concomitant]
     Active Substance: SULFAMETHOXAZOLE\TRIMETHOPRIM
  3. BAYER LOW DOSE [Suspect]
     Active Substance: ASPIRIN
     Indication: PRODUCT USED FOR UNKNOWN INDICATION
  4. CHONDROITIN/GLUCOSAMINE [Concomitant]
  5. TENORMIN [Concomitant]
     Active Substance: ATENOLOL
  6. LOPID [Concomitant]
     Active Substance: GEMFIBROZIL
  7. XALATAN [Concomitant]
     Active Substance: LATANOPROST
  8. UROXATRAL [Concomitant]
     Active Substance: ALFUZOSIN HYDROCHLORIDE
  9. ALEVE [Suspect]
     Active Substance: NAPROXEN SODIUM
     Indication: ANALGESIC THERAPY
     Route: 048
     Dates: start: 20171211
  10. VYTORIN [Concomitant]
     Active Substance: EZETIMIBE\SIMVASTATIN
  11. SLOW MAG [Concomitant]
     Active Substance: MAGNESIUM CHLORIDE

REACTIONS (1)
  - Pruritus [Unknown]

NARRATIVE: CASE EVENT DATE: 20171212
